FAERS Safety Report 12948043 (Version 1)
Quarter: 2016Q4

REPORT INFORMATION
  Report Type: Spontaneous
  Country: LB (occurrence: LB)
  Receive Date: 20161116
  Receipt Date: 20161116
  Transmission Date: 20170207
  Serious: Yes (Other)
  Sender: FDA-Public Use
  Company Number: LB-SA-2016SA177374

PATIENT
  Age: 65 Year
  Sex: Female

DRUGS (6)
  1. EPINEPHRINE. [Suspect]
     Active Substance: EPINEPHRINE
     Indication: INDUCTION OF ANAESTHESIA
     Dosage: MIXTURE OF LIDOCAINE 1% AND EPINEPHRINE 1:100 000
     Route: 058
  2. MUPIROCIN. [Suspect]
     Active Substance: MUPIROCIN
     Route: 061
  3. POVIDONE IODINE/POVIDONE [Concomitant]
  4. LIDOCAINE. [Suspect]
     Active Substance: LIDOCAINE
     Indication: INDUCTION OF ANAESTHESIA
     Dosage: MIXTURE OF LIDOCAINE 1% AND EPINEPHRINE 1:100 000
     Route: 058
  5. FUSIDIC ACID [Concomitant]
     Active Substance: FUSIDIC ACID
  6. CHLORHEXIDINE [Concomitant]
     Active Substance: CHLORHEXIDINE

REACTIONS (4)
  - Rash erythematous [Unknown]
  - Dermatitis contact [Unknown]
  - Dermatitis bullous [Unknown]
  - Type IV hypersensitivity reaction [Unknown]
